FAERS Safety Report 4746898-9 (Version None)
Quarter: 2005Q3

REPORT INFORMATION
  Report Type: 
  Country: None (occurrence: None)
  Receive Date: 20050817
  Receipt Date: 20050808
  Transmission Date: 20060218
  Serious: Yes (Other)
  Sender: FDA-Public Use
  Company Number: US-ROCHE-413617

PATIENT
  Age: 63 Year
  Sex: Female
  Weight: 49.9 kg

DRUGS (4)
  1. BONIVA [Suspect]
     Indication: OSTEOPOROSIS
     Route: 048
     Dates: start: 20050630, end: 20050731
  2. COUMADIN [Concomitant]
     Indication: DEEP VEIN THROMBOSIS
     Route: 048
  3. ATENOLOL [Concomitant]
     Route: 048
  4. CALCIUM/VITAMIN D [Concomitant]
     Route: 048

REACTIONS (4)
  - OESOPHAGEAL ULCER [None]
  - OESOPHAGITIS [None]
  - STOMATITIS [None]
  - TONGUE ULCERATION [None]
